FAERS Safety Report 5398650-1 (Version None)
Quarter: 2007Q3

REPORT INFORMATION
  Report Type: 
  Country: None (occurrence: None)
  Receive Date: 20070726
  Receipt Date: 20060929
  Transmission Date: 20080115
  Serious: No
  Sender: FDA-Public Use
  Company Number: US-AMGEN-US195296

PATIENT
  Sex: Female
  Weight: 61 kg

DRUGS (13)
  1. NEUPOGEN [Suspect]
     Indication: CHEMOTHERAPY
     Route: 058
     Dates: start: 20060728
  2. PROCRIT [Suspect]
     Indication: ANAEMIA OF MALIGNANT DISEASE
     Route: 058
     Dates: start: 20060509
  3. PROZAC [Concomitant]
     Route: 065
  4. HYZAAR [Concomitant]
     Route: 065
  5. TOPROL-XL [Concomitant]
     Route: 065
  6. LOVENOX [Concomitant]
     Route: 065
  7. EMEND [Concomitant]
     Route: 065
  8. ZOFRAN [Concomitant]
     Route: 065
  9. LIDOCAINE [Concomitant]
     Route: 065
  10. CISPLATIN [Concomitant]
     Route: 065
     Dates: start: 20060426, end: 20060918
  11. ETOPOSIDE [Concomitant]
     Route: 065
     Dates: start: 20060426, end: 20060918
  12. TAXOL [Concomitant]
     Route: 065
     Dates: start: 20060925
  13. ZOMETA [Concomitant]
     Route: 065
     Dates: start: 20060525

REACTIONS (1)
  - WHITE BLOOD CELL COUNT INCREASED [None]
